FAERS Safety Report 4353108-3 (Version None)
Quarter: 2004Q2

REPORT INFORMATION
  Report Type: 
  Country: None (occurrence: None)
  Receive Date: 20040429
  Receipt Date: 20040416
  Transmission Date: 20050107
  Serious: No
  Sender: FDA-Public Use
  Company Number: 2004CG00630

PATIENT
  Age: 41 Year
  Sex: Female

DRUGS (2)
  1. NAROPEINE [Suspect]
     Indication: LOCAL ANAESTHESIA
     Dates: start: 20030507, end: 20030507
  2. COZAAR [Concomitant]

REACTIONS (8)
  - ALLODYNIA [None]
  - DELAYED RECOVERY FROM ANAESTHESIA [None]
  - DRUG INTOLERANCE [None]
  - ISCHAEMIA [None]
  - MOTOR DYSFUNCTION [None]
  - NERVE INJURY [None]
  - PARAESTHESIA [None]
  - SOMATOSENSORY EVOKED POTENTIALS ABNORMAL [None]
